FAERS Safety Report 5074239-9 (Version None)
Quarter: 2006Q3

REPORT INFORMATION
  Report Type: 
  Country: None (occurrence: None)
  Receive Date: 20060803
  Receipt Date: 20060726
  Transmission Date: 20061208
  Serious: Yes (Hospitalization)
  Sender: FDA-Public Use
  Company Number: NALB20060003

PATIENT
  Age: 10 Year
  Sex: Male

DRUGS (2)
  1. NALBUPHINE HCL  20 MG/2 ML  UNKNOWN [Suspect]
     Indication: ACUTE LYMPHOCYTIC LEUKAEMIA
     Dosage: IV
     Route: 042
     Dates: start: 20060101
  2. METHOTREXATE [Concomitant]

REACTIONS (3)
  - APNOEA [None]
  - COMA [None]
  - CONVERSION DISORDER [None]
